FAERS Safety Report 15720628 (Version 2)
Quarter: 2019Q1

REPORT INFORMATION
  Report Type: Report from Study
  Country: US (occurrence: US)
  Receive Date: 20181213
  Receipt Date: 20190226
  Transmission Date: 20190417
  Serious: Yes (Other)
  Sender: FDA-Public Use
  Company Number: US-MYLANLABS-2018M1093023

PATIENT

DRUGS (1)
  1. GLATIRAMER ACETATE INJECTION [Suspect]
     Active Substance: GLATIRAMER ACETATE
     Indication: RELAPSING-REMITTING MULTIPLE SCLEROSIS
     Dosage: 20 MILLIGRAM, 3XW
     Route: 058

REACTIONS (5)
  - Product label issue [Unknown]
  - Injection site mass [Unknown]
  - Multiple sclerosis [Unknown]
  - Drug dose omission by device [Unknown]
  - Product leakage [Unknown]
